FAERS Safety Report 7091917-0 (Version None)
Quarter: 2010Q4

REPORT INFORMATION
  Report Type: 
  Country: None (occurrence: None)
  Receive Date: 20101101
  Receipt Date: 20101025
  Transmission Date: 20110411
  Serious: Yes (Other)
  Sender: FDA-Public Use
  Company Number: NO-GDP-10409206

PATIENT
  Age: 38 Year
  Sex: Female

DRUGS (1)
  1. EPIDUO [Suspect]
     Indication: PRODUCT USED FOR UNKNOWN INDICATION
     Dosage: (TOPICAL)
     Route: 061
     Dates: start: 20101022

REACTIONS (1)
  - HYPERSENSITIVITY [None]
